FAERS Safety Report 22145967 (Version 1)
Quarter: 2023Q1

REPORT INFORMATION
  Report Type: Spontaneous
  Country: US (occurrence: None)
  Receive Date: 20230327
  Receipt Date: 20230327
  Transmission Date: 20230418
  Serious: Yes (Other)
  Sender: FDA-Public Use
  Company Number: None

PATIENT
  Age: 18 Year
  Sex: Male
  Weight: 74.7 kg

DRUGS (2)
  1. ARIPIPRAZOLE [Suspect]
     Active Substance: ARIPIPRAZOLE
     Indication: Autism spectrum disorder
     Dosage: FREQUENCY : DAILY;?
     Route: 048
     Dates: start: 20221129, end: 20230130
  2. citalopram 20mg/day [Concomitant]
     Dates: start: 20090801

REACTIONS (4)
  - Cough [None]
  - Throat clearing [None]
  - Habit cough [None]
  - Therapy change [None]
